FAERS Safety Report 4336515-4 (Version None)
Quarter: 2004Q2

REPORT INFORMATION
  Report Type: 
  Country: None (occurrence: None)
  Receive Date: 20040407
  Receipt Date: 20040323
  Transmission Date: 20050107
  Serious: Yes (Hospitalization)
  Sender: FDA-Public Use
  Company Number: US_0403101810

PATIENT
  Age: 71 Year
  Sex: Female
  Weight: 116 kg

DRUGS (1)
  1. HUMULIN N [Suspect]
     Indication: DIABETES MELLITUS
     Dosage: 98 U DAY
     Dates: start: 19840101, end: 20040301

REACTIONS (2)
  - ASTHMA [None]
  - PNEUMONIA [None]
